FAERS Safety Report 11651470 (Version 1)
Quarter: 2015Q4

REPORT INFORMATION
  Report Type: Spontaneous
  Country: DK (occurrence: DK)
  Receive Date: 20151022
  Receipt Date: 20151022
  Transmission Date: 20160304
  Serious: Yes (Hospitalization)
  Sender: FDA-Public Use
  Company Number: DK-ROCHE-1648528

PATIENT
  Age: 18 Year
  Sex: Male
  Weight: 104 kg

DRUGS (4)
  1. CISORDINOL-ACUTARD [Concomitant]
     Active Substance: ZUCLOPENTHIXOL ACETATE
     Indication: MANIA
     Route: 065
     Dates: start: 20150911, end: 20150913
  2. RIVOTRIL [Suspect]
     Active Substance: CLONAZEPAM
     Indication: MANIA
     Route: 048
     Dates: start: 20150911, end: 20150914
  3. ABILIFY [Suspect]
     Active Substance: ARIPIPRAZOLE
     Indication: MANIA
     Dosage: DOSIS: 10 MG  09SEP2015, 20 MG. 10SEP2015, 30 MG. 15SEP2015. STYRKE: 10 MG.
     Route: 048
     Dates: start: 20150909, end: 20150917
  4. LITAREX [Concomitant]
     Active Substance: LITHIUM CITRATE
     Route: 065

REACTIONS (9)
  - Sedation [Recovering/Resolving]
  - Bradykinesia [Recovering/Resolving]
  - Dysphagia [Recovering/Resolving]
  - Extrapyramidal disorder [Recovering/Resolving]
  - Gait disturbance [Not Recovered/Not Resolved]
  - Eyelid dermatochalasis [Recovering/Resolving]
  - Restlessness [Not Recovered/Not Resolved]
  - Akathisia [Not Recovered/Not Resolved]
  - Salivary hypersecretion [Recovering/Resolving]

NARRATIVE: CASE EVENT DATE: 20150914
